FAERS Safety Report 4932674-0 (Version None)
Quarter: 2006Q1

REPORT INFORMATION
  Report Type: 
  Country: None (occurrence: None)
  Receive Date: 20060301
  Receipt Date: 20060223
  Transmission Date: 20060701
  Serious: Yes (Hospitalization)
  Sender: FDA-Public Use
  Company Number: USA-2006-0022447

PATIENT
  Age: 31 Year
  Sex: Female

DRUGS (2)
  1. CEFDITOREN PIVOXIL (SIMILAR TO NDA 21-222)(CEFDITOREN PIVOXIL) [Suspect]
     Indication: INFECTION PROPHYLAXIS
     Dosage: 300 MG,DAILY
     Dates: start: 20051228, end: 20051231
  2. FROBEN [Suspect]
     Indication: INFECTION PROPHYLAXIS
     Dosage: 40 MG, DAILY, ORAL
     Route: 048
     Dates: start: 20051228, end: 20051231

REACTIONS (8)
  - ABDOMINAL PAIN UPPER [None]
  - ALANINE AMINOTRANSFERASE INCREASED [None]
  - ASPARTATE AMINOTRANSFERASE INCREASED [None]
  - BLOOD ALKALINE PHOSPHATASE INCREASED [None]
  - BLOOD LACTATE DEHYDROGENASE INCREASED [None]
  - BOREDOM [None]
  - GAMMA-GLUTAMYLTRANSFERASE INCREASED [None]
  - HEPATIC FUNCTION ABNORMAL [None]
